FAERS Safety Report 7928613-0 (Version None)
Quarter: 2011Q4

REPORT INFORMATION
  Report Type: 
  Country: None (occurrence: None)
  Receive Date: 20111118
  Receipt Date: 20111117
  Transmission Date: 20120403
  Serious: Yes (Hospitalization, Other)
  Sender: FDA-Public Use
  Company Number: AT-ABBOTT-11P-143-0871995-00

PATIENT
  Sex: Female
  Weight: 68 kg

DRUGS (4)
  1. METHOTREXATE [Concomitant]
     Dosage: 15MG PER WEEK
     Route: 048
     Dates: start: 20030101, end: 20080101
  2. METHOTREXATE [Concomitant]
     Dosage: ORAL AND SC WITH LOW EFFICIENCY
     Dates: start: 20090801
  3. METHOTREXATE [Concomitant]
     Indication: PRODUCT USED FOR UNKNOWN INDICATION
     Route: 048
     Dates: start: 20101201
  4. HUMIRA [Suspect]
     Indication: RHEUMATOID ARTHRITIS
     Route: 058
     Dates: start: 20101201, end: 20110601

REACTIONS (6)
  - HEADACHE [None]
  - TUBERCULOSIS [None]
  - PYREXIA [None]
  - MENTAL DISORDER [None]
  - ARTHRALGIA [None]
  - GENERAL PHYSICAL HEALTH DETERIORATION [None]
